FAERS Safety Report 5365040-7 (Version None)
Quarter: 2007Q2

REPORT INFORMATION
  Report Type: 
  Country: None (occurrence: None)
  Receive Date: 20070530
  Receipt Date: 20070308
  Transmission Date: 20071010
  Serious: No
  Sender: FDA-Public Use
  Company Number: 2006PV012400

PATIENT
  Age: 62 Year
  Sex: Female
  Weight: 88.4514 kg

DRUGS (11)
  1. BYETTA [Suspect]
     Indication: DIABETES MELLITUS NON-INSULIN-DEPENDENT
     Dosage: SEE IMAGE
     Route: 058
     Dates: start: 20060401, end: 20060501
  2. BYETTA [Suspect]
     Indication: DIABETES MELLITUS NON-INSULIN-DEPENDENT
     Dosage: SEE IMAGE
     Route: 058
     Dates: start: 20060417, end: 20060617
  3. BYETTA [Suspect]
     Indication: DIABETES MELLITUS NON-INSULIN-DEPENDENT
     Dosage: SEE IMAGE
     Route: 058
     Dates: start: 20060501
  4. BYETTA [Suspect]
     Indication: DIABETES MELLITUS NON-INSULIN-DEPENDENT
     Dosage: SEE IMAGE
     Route: 058
     Dates: start: 20060617
  5. BYETTA [Suspect]
  6. METFORMIN HCL [Concomitant]
  7. AMARYL [Concomitant]
  8. LISINOPRIL [Concomitant]
  9. VYTORIN [Concomitant]
  10. AMARYL [Concomitant]
  11. GLUCOPHAGE [Concomitant]

REACTIONS (5)
  - CHILLS [None]
  - DRUG EFFECT DECREASED [None]
  - FEELING COLD [None]
  - NAUSEA [None]
  - VOMITING [None]
